FAERS Safety Report 9701401 (Version 2)
Quarter: 2013Q4

REPORT INFORMATION
  Report Type: Spontaneous
  Country: US (occurrence: US)
  Receive Date: 20131121
  Receipt Date: 20131121
  Transmission Date: 20140711
  Serious: No
  Sender: FDA-Public Use
  Company Number: US-GILEAD-2008-0016456

PATIENT
  Sex: Male
  Weight: 99.79 kg

DRUGS (26)
  1. LETAIRIS [Suspect]
     Indication: PULMONARY ARTERIAL HYPERTENSION
     Route: 048
     Dates: start: 20080122
  2. ANTIVERT [Concomitant]
     Route: 048
  3. NIFEDIPINE ER [Concomitant]
     Route: 048
  4. NIFEDIPINE ER [Concomitant]
     Route: 048
  5. METOLAZONE [Concomitant]
     Dosage: AS DIRECTED
     Route: 048
  6. DIGOXIN [Concomitant]
     Route: 048
  7. CAPTOPRIL [Concomitant]
     Route: 048
  8. LASIX [Concomitant]
     Route: 048
  9. TRIMETHOPRIM [Concomitant]
     Dosage: AS DIRECTED
     Route: 048
  10. ASPIRIN [Concomitant]
     Dosage: AS DIRECTED
     Route: 048
  11. METOPROLOL [Concomitant]
     Route: 048
  12. GLUMETZA ER [Concomitant]
     Dosage: AS DIRECTED
     Route: 048
  13. GLIMEPIRIDE [Concomitant]
     Dosage: AS DIRECTED
     Route: 048
  14. AVANDARYL [Concomitant]
     Route: 048
  15. CYMBALTA [Concomitant]
     Dosage: IN THE MORNING
     Route: 048
  16. PRIMIDONE [Concomitant]
     Dosage: AS DIRECTED
     Route: 048
  17. DIAZEPAM [Concomitant]
     Dosage: AS DIRECTED
     Route: 048
  18. POTASSIUM CL [Concomitant]
     Route: 048
  19. NEURONTIN [Concomitant]
     Route: 048
  20. GEMFIBROZIL [Concomitant]
     Route: 048
  21. PRAVASTATIN [Concomitant]
     Dosage: AS DIRECTED
     Route: 048
  22. SIMVASTATIN [Concomitant]
     Dosage: AT BEDTIME
     Route: 048
  23. ZETIA [Concomitant]
     Route: 048
  24. TERAZOSIN [Concomitant]
     Route: 048
  25. AVODART [Concomitant]
     Dosage: AS DIRECTED
     Route: 048
  26. TESTIM 1% GEL [Concomitant]
     Dosage: AS DIRECTED
     Route: 061

REACTIONS (2)
  - Abdominal discomfort [Recovered/Resolved]
  - Diarrhoea [Recovered/Resolved]
